FAERS Safety Report 16685536 (Version 1)
Quarter: 2019Q3

REPORT INFORMATION
  Report Type: Spontaneous
  Country: US (occurrence: US)
  Receive Date: 20190809
  Receipt Date: 20190809
  Transmission Date: 20191004
  Serious: No
  Sender: FDA-Public Use
  Company Number: US-SA-2019SA211441

PATIENT
  Age: 62 Year
  Sex: Female

DRUGS (1)
  1. DUPIXENT [Suspect]
     Active Substance: DUPILUMAB
     Indication: ASTHMA
     Dosage: 600 MG, 1X
     Route: 058
     Dates: start: 20190723

REACTIONS (5)
  - Feeling abnormal [Unknown]
  - Paranoia [Unknown]
  - Social avoidant behaviour [Unknown]
  - Nightmare [Unknown]
  - Nervousness [Unknown]

NARRATIVE: CASE EVENT DATE: 20190723
